FAERS Safety Report 5331026-1 (Version None)
Quarter: 2007Q2

REPORT INFORMATION
  Report Type: 
  Country: None (occurrence: None)
  Receive Date: 20070517
  Receipt Date: 20070503
  Transmission Date: 20071010
  Serious: Yes (Death)
  Sender: FDA-Public Use
  Company Number: POMP-10991

PATIENT
  Age: 11 Month
  Sex: Male
  Weight: 8.9 kg

DRUGS (1)
  1. MYOZYME [Suspect]
     Indication: GLYCOGEN STORAGE DISEASE TYPE II
     Dosage: 20 MG/LG Q2WKS IV
     Route: 042
     Dates: start: 20060509, end: 20070220

REACTIONS (4)
  - DYSPHAGIA [None]
  - MUSCLE DISORDER [None]
  - MYOTONIA [None]
  - PNEUMONIA ASPIRATION [None]
